FAERS Safety Report 8150635 (Version 2)
Quarter: 2013Q1

REPORT INFORMATION
  Report Type: Spontaneous
  Country: US (occurrence: US)
  Receive Date: 20110922
  Receipt Date: 20130215
  Transmission Date: 20140127
  Serious: Yes (Other)
  Sender: FDA-Public Use
  Company Number: US-ASTRAZENECA-2011SE12565

PATIENT
  Sex: Female

DRUGS (2)
  1. SEROQUEL [Suspect]
     Dosage: TWO OR THREE TABLETS BY MOUTH AT NIGHT
     Route: 048
     Dates: start: 20090106
  2. SERTRALINE [Concomitant]
     Dosage: 1/2 TABLET AT BEDTIME FOR SEVEN DAYS, THEN INCREASE TO 1 TABLET AT BEDTIME
     Route: 048
     Dates: start: 20090224

REACTIONS (3)
  - Pancreatitis [Unknown]
  - Diabetic coma [Unknown]
  - Type 2 diabetes mellitus [Unknown]
